FAERS Safety Report 7270637-3 (Version None)
Quarter: 2011Q1

REPORT INFORMATION
  Report Type: 
  Country: None (occurrence: None)
  Receive Date: 20110202
  Receipt Date: 20110128
  Transmission Date: 20110831
  Serious: Yes (Death, Hospitalization)
  Sender: FDA-Public Use
  Company Number: A0905457A

PATIENT
  Age: 60 Year
  Sex: Female

DRUGS (1)
  1. PROMACTA [Suspect]
     Indication: MYELODYSPLASTIC SYNDROME
     Dosage: 25MG PER DAY
     Route: 048
     Dates: start: 20100726, end: 20100901

REACTIONS (7)
  - PANCYTOPENIA [None]
  - MYELODYSPLASTIC SYNDROME [None]
  - CONVULSION [None]
  - ABSCESS LIMB [None]
  - DRUG INEFFECTIVE [None]
  - ASTHENIA [None]
  - CATHETER SITE INFECTION [None]
